FAERS Safety Report 6174761-8 (Version None)
Quarter: 2009Q2

REPORT INFORMATION
  Report Type: 
  Country: None (occurrence: None)
  Receive Date: 20090430
  Receipt Date: 20080916
  Transmission Date: 20091009
  Serious: Yes (Hospitalization)
  Sender: FDA-Public Use
  Company Number: US-ASTRAZENECA-2008UW19144

PATIENT
  Age: 69 Year
  Sex: Female
  Weight: 72.6 kg

DRUGS (9)
  1. NEXIUM [Suspect]
     Route: 048
     Dates: start: 20080812, end: 20080830
  2. ACETYLSALICYLIC ACID [Concomitant]
     Route: 048
  3. COREG [Concomitant]
     Route: 048
  4. LIPITOR [Concomitant]
     Route: 048
  5. METFORMIN HCL [Concomitant]
     Route: 048
  6. FELODIPINE [Concomitant]
     Route: 048
  7. SPIRONOLACTONE [Concomitant]
     Route: 048
  8. BENICAR HCT [Concomitant]
     Route: 048
  9. NOVOLOG [Concomitant]
     Route: 058

REACTIONS (1)
  - ABDOMINAL PAIN UPPER [None]
